FAERS Safety Report 7546069-7 (Version None)
Quarter: 2011Q2

REPORT INFORMATION
  Report Type: 
  Country: None (occurrence: None)
  Receive Date: 20110614
  Receipt Date: 20110602
  Transmission Date: 20111010
  Serious: Yes (Other)
  Sender: FDA-Public Use
  Company Number: PHHY2010BR88511

PATIENT
  Sex: Female

DRUGS (1)
  1. EXELON [Suspect]
     Dosage: 3 MG, UNK
     Route: 048
     Dates: end: 20101223

REACTIONS (4)
  - DIARRHOEA [None]
  - CHOKING [None]
  - SUFFOCATION FEELING [None]
  - VOMITING [None]
